FAERS Safety Report 15375542 (Version 2)
Quarter: 2018Q3

REPORT INFORMATION
  Report Type: Spontaneous
  Country: ES (occurrence: ES)
  Receive Date: 20180912
  Receipt Date: 20180919
  Transmission Date: 20181010
  Serious: Yes (Hospitalization, Other)
  Sender: FDA-Public Use
  Company Number: ES-GLAXOSMITHKLINE-ES2018163993

PATIENT
  Age: 42 Year
  Sex: Male
  Weight: 131 kg

DRUGS (2)
  1. ORLISTAT. [Suspect]
     Active Substance: ORLISTAT
     Indication: OBESITY
     Dosage: 240 MG, QD
     Route: 065
  2. ORLISTAT. [Suspect]
     Active Substance: ORLISTAT
     Indication: HEPATIC STEATOSIS

REACTIONS (7)
  - Hepatic failure [Recovered/Resolved]
  - Hepatic steatosis [Recovered/Resolved]
  - Hypovolaemic shock [Recovered/Resolved]
  - Condition aggravated [Recovered/Resolved]
  - Encephalopathy [Recovered/Resolved]
  - Coagulopathy [Recovered/Resolved]
  - Oliguria [Recovered/Resolved]
